FAERS Safety Report 5447229-1 (Version None)
Quarter: 2007Q3

REPORT INFORMATION
  Report Type: 
  Country: None (occurrence: None)
  Receive Date: 20070910
  Receipt Date: 20070831
  Transmission Date: 20080115
  Serious: Yes (Death)
  Sender: FDA-Public Use
  Company Number: DE-BAYER-200710854BVD

PATIENT
  Sex: Female

DRUGS (1)
  1. AVELOX [Suspect]
     Indication: UNEVALUABLE EVENT
     Route: 042
     Dates: start: 20070217, end: 20070221

REACTIONS (1)
  - PSEUDOMEMBRANOUS COLITIS [None]
